FAERS Safety Report 6300087-5 (Version None)
Quarter: 2009Q3

REPORT INFORMATION
  Report Type: 
  Country: None (occurrence: None)
  Receive Date: 20090806
  Receipt Date: 20090730
  Transmission Date: 20100115
  Serious: Yes (Hospitalization)
  Sender: FDA-Public Use
  Company Number: NL-AMGEN-US261285

PATIENT
  Age: 12 Year
  Sex: Female
  Weight: 55 kg

DRUGS (7)
  1. ENBREL [Suspect]
     Indication: JUVENILE ARTHRITIS
     Dates: start: 20071116, end: 20081123
  2. EMTHEXATE [Suspect]
     Route: 058
     Dates: start: 20071114
  3. EMTHEXATE [Suspect]
  4. ZALDIAR [Concomitant]
  5. OMEPRAZOLE [Concomitant]
  6. FOLIC ACID [Concomitant]
  7. FOLIC ACID [Concomitant]

REACTIONS (25)
  - ABDOMINAL PAIN UPPER [None]
  - ARTHRALGIA [None]
  - BURNING SENSATION [None]
  - CHEST DISCOMFORT [None]
  - CONDITION AGGRAVATED [None]
  - COUGH [None]
  - DYSPHAGIA [None]
  - DYSPNOEA [None]
  - GENERAL PHYSICAL HEALTH DETERIORATION [None]
  - HEADACHE [None]
  - HYPERHIDROSIS [None]
  - NEURALGIA [None]
  - NODULE [None]
  - OEDEMA PERIPHERAL [None]
  - PAIN [None]
  - PALLOR [None]
  - PARAESTHESIA [None]
  - RESPIRATORY TRACT IRRITATION [None]
  - SENSATION OF FOREIGN BODY [None]
  - SENSATION OF PRESSURE [None]
  - SINUSITIS [None]
  - SWELLING FACE [None]
  - TINNITUS [None]
  - VERTIGO POSITIONAL [None]
  - VISUAL IMPAIRMENT [None]
